FAERS Safety Report 9688037 (Version 1)
Quarter: 2013Q4

REPORT INFORMATION
  Report Type: Not Available
  Country: FR (occurrence: FR)
  Receive Date: 20131114
  Receipt Date: 20131114
  Transmission Date: 20140711
  Serious: Yes (Hospitalization)
  Sender: FDA-Public Use
  Company Number: FR-ASTELLAS-2013EU009900

PATIENT
  Age: 59 Year
  Sex: Female

DRUGS (7)
  1. PROGRAF [Suspect]
     Indication: IMMUNOSUPPRESSION
     Dosage: 3.5 MG, BID
     Route: 048
     Dates: start: 20130607, end: 20130903
  2. CELLCEPT                           /01275102/ [Concomitant]
     Dosage: 1 G, BID
     Route: 065
  3. SOLUPRED                           /00016201/ [Concomitant]
     Dosage: 30 MG, UID/QD
     Route: 065
  4. KARDEGIC [Concomitant]
     Dosage: 75 MG, UNKNOWN/D
     Route: 065
  5. IPERTEN [Concomitant]
     Dosage: 20 MG, UNKNOWN/D
     Route: 065
  6. LEVOTHYROX [Concomitant]
     Dosage: 50 UG, UNKNOWN/D
     Route: 065
  7. INEXIUM                            /01479302/ [Concomitant]
     Dosage: 40 MG, UNKNOWN/D
     Route: 065

REACTIONS (1)
  - Renal tubular disorder [Recovered/Resolved]
